FAERS Safety Report 6302834-5 (Version None)
Quarter: 2009Q3

REPORT INFORMATION
  Report Type: 
  Country: None (occurrence: None)
  Receive Date: 20090810
  Receipt Date: 20090728
  Transmission Date: 20100115
  Serious: Yes (Hospitalization)
  Sender: FDA-Public Use
  Company Number: JP-SANOFI-SYNTHELABO-A01200906812

PATIENT
  Sex: Male
  Weight: 76 kg

DRUGS (8)
  1. ARTIST [Suspect]
     Indication: MYOCARDIAL INFARCTION
     Route: 048
     Dates: start: 20090522, end: 20090622
  2. ZANTAC [Suspect]
     Indication: GASTRIC DISORDER
     Route: 048
     Dates: start: 20090512, end: 20090617
  3. CILOSTAZOL [Suspect]
     Indication: MYOCARDIAL INFARCTION
     Route: 048
     Dates: start: 20090510, end: 20090622
  4. TELMISARTAN [Suspect]
     Indication: MYOCARDIAL INFARCTION
     Route: 048
     Dates: start: 20090501, end: 20090622
  5. MEVALOTIN [Suspect]
     Indication: MYOCARDIAL INFARCTION
     Route: 048
     Dates: start: 20090501, end: 20090617
  6. ASPIRIN [Suspect]
     Indication: MYOCARDIAL INFARCTION
     Route: 048
     Dates: start: 20090422, end: 20090509
  7. ASPIRIN [Suspect]
     Route: 048
     Dates: start: 20090510, end: 20090617
  8. PLAVIX [Suspect]
     Indication: MYOCARDIAL INFARCTION
     Route: 048
     Dates: start: 20090501, end: 20090622

REACTIONS (6)
  - DRUG RASH WITH EOSINOPHILIA AND SYSTEMIC SYMPTOMS [None]
  - ERYTHEMA [None]
  - LIVER DISORDER [None]
  - MUCOSAL EROSION [None]
  - PRURITUS GENERALISED [None]
  - SWELLING FACE [None]
